FAERS Safety Report 9154419 (Version 1)
Quarter: 2013Q1

REPORT INFORMATION
  Report Type: Spontaneous
  Country: GB (occurrence: None)
  Receive Date: 20130207
  Receipt Date: 20130207
  Transmission Date: 20140127
  Serious: Yes (Hospitalization)
  Sender: FDA-Public Use
  Company Number: 2013-01764

PATIENT
  Age: 57 Year
  Sex: Male
  Weight: 68 kg

DRUGS (1)
  1. NAPROXEN [Suspect]
     Indication: BACK PAIN
     Route: 048
     Dates: start: 20120828, end: 20120902

REACTIONS (5)
  - Blood cholesterol increased [None]
  - Chest discomfort [None]
  - Troponin increased [None]
  - Chest pain [None]
  - Dyspnoea [None]
